FAERS Safety Report 4866754-5 (Version None)
Quarter: 2005Q4

REPORT INFORMATION
  Report Type: 
  Country: None (occurrence: None)
  Receive Date: 20051221
  Receipt Date: 20051208
  Transmission Date: 20060501
  Serious: Yes (Life-Threatening)
  Sender: FDA-Public Use
  Company Number: 2005162636

PATIENT
  Age: 78 Year
  Sex: Male
  Weight: 62 kg

DRUGS (8)
  1. VFEND [Suspect]
     Indication: SYSTEMIC CANDIDA
     Dosage: 400 MG (200 MG, 1 IN 2 D), INTRAVENOUS
     Route: 042
     Dates: start: 20051109, end: 20051114
  2. VFEND [Suspect]
     Indication: SYSTEMIC CANDIDA
     Dosage: 400 MG (200 MG, 1 IN 2 D), ORAL
     Route: 048
     Dates: start: 20051115, end: 20051124
  3. IMMUNOSUPPRESSIVE AGENTS (IMMUNOSUPPRESSIVE AGENTS) [Concomitant]
  4. MAXIPIME [Concomitant]
  5. FOSFLUCONAZOLE (FOSFULUCONAZOLE) [Concomitant]
  6. CLINDAMYCIN HCL [Concomitant]
  7. CLARITHROMYCIN [Concomitant]
  8. LEVOFLOXACIN [Concomitant]

REACTIONS (6)
  - ANAEMIA [None]
  - CARDIAC FAILURE ACUTE [None]
  - CARDIOMEGALY [None]
  - DISEASE RECURRENCE [None]
  - FUNGAL SEPSIS [None]
  - PNEUMONIA [None]
